FAERS Safety Report 7676487-8 (Version None)
Quarter: 2011Q3

REPORT INFORMATION
  Report Type: 
  Country: None (occurrence: None)
  Receive Date: 20110811
  Receipt Date: 20110728
  Transmission Date: 20111222
  Serious: Yes (Other)
  Sender: FDA-Public Use
  Company Number: GB-UCBSA-036640

PATIENT
  Sex: Female
  Weight: 85 kg

DRUGS (20)
  1. FOLIC ACID [Concomitant]
     Route: 048
     Dates: start: 20050101
  2. OMEPRAZOLE [Concomitant]
     Indication: DYSPEPSIA
     Route: 048
     Dates: start: 20101014
  3. VALSARTAN [Concomitant]
     Indication: BLOOD PRESSURE
     Route: 048
  4. CIMZIA [Suspect]
     Indication: RHEUMATOID ARTHRITIS
     Route: 058
     Dates: start: 20110221, end: 20110601
  5. LEFLUNOMIDE [Concomitant]
     Indication: RHEUMATOID ARTHRITIS
     Route: 048
     Dates: start: 20091201
  6. SPIRONOLACTONE [Concomitant]
     Indication: OEDEMA
     Route: 048
     Dates: start: 20110204
  7. SODIU CROMOGLYCATE 2% EYE DROPS [Concomitant]
     Indication: SEASONAL ALLERGY
     Dosage: 1 DROP
     Dates: start: 20060101
  8. FELODIPINE [Concomitant]
     Indication: BLOOD PRESSURE
     Route: 048
     Dates: start: 20110505
  9. DESLORATADINE [Concomitant]
     Indication: PRURITUS
     Route: 048
     Dates: start: 20100521
  10. DESLORATADINE [Concomitant]
     Indication: SEASONAL ALLERGY
     Route: 048
     Dates: start: 20100521
  11. WARFARIN SODIUM [Concomitant]
     Indication: DEEP VEIN THROMBOSIS
     Dosage: AS PER INR
     Route: 048
  12. VENTOLIN HFA [Concomitant]
     Indication: ASTHMA
     Dosage: 2 PUFFS
     Dates: start: 20040101
  13. MONTELUKAST SODIUM [Suspect]
     Indication: ASTHMA
     Dosage: ONCE AT NIGHT
     Route: 048
     Dates: start: 20110325
  14. METHOTREXATE [Concomitant]
     Indication: RHEUMATOID ARTHRITIS
     Dosage: 25 MG WEEKLY
     Route: 048
     Dates: start: 20081201
  15. SERETIDE [Concomitant]
     Indication: ASTHMA
     Dosage: 500/50, 2 PUFFS BD- 4 PUFFS, INHALER
     Dates: start: 20090122
  16. BUTRANS 5 [Concomitant]
     Indication: PAIN
     Route: 061
     Dates: start: 20090122
  17. AMINOPHYLLIN TAB [Concomitant]
     Indication: ASTHMA
     Route: 048
     Dates: start: 20110325
  18. AMITRIPTYLINE HCL [Concomitant]
     Indication: PAIN
     Dates: start: 20060101, end: 20110314
  19. FUROSEMIDE [Concomitant]
     Indication: OEDEMA
     Route: 048
     Dates: start: 20090430
  20. FLUTICASONE NASAL SPRAY [Concomitant]
     Indication: SEASONAL ALLERGY
     Dosage: 2 PUFFS ONCE A DAY
     Route: 045

REACTIONS (6)
  - DELUSION [None]
  - HALLUCINATION, AUDITORY [None]
  - ANXIETY [None]
  - AGITATION [None]
  - PARANOIA [None]
  - MENTAL DISORDER [None]
